FAERS Safety Report 9104895 (Version 1)
Quarter: 2013Q1

REPORT INFORMATION
  Report Type: Spontaneous
  Country: AU (occurrence: AU)
  Receive Date: 20130219
  Receipt Date: 20130219
  Transmission Date: 20140127
  Serious: Yes (Other)
  Sender: FDA-Public Use
  Company Number: PHHY2012AU115989

PATIENT
  Age: 83 None
  Sex: Male

DRUGS (15)
  1. ACLASTA [Suspect]
     Indication: OSTEOPOROSIS
     Dosage: 5 MG, UNK
     Route: 042
     Dates: start: 20111021
  2. ACLASTA [Suspect]
     Dosage: 5 MG, UNK
     Route: 042
     Dates: start: 20130125
  3. ALLOPURINOL [Concomitant]
     Dosage: 300 MG, QD
  4. CARDIPRIN [Concomitant]
     Dosage: 100 MG, QD
  5. CARDIZEM [Concomitant]
     Dosage: 360 MG, QD
  6. COVERSYL                                /BEL/ [Concomitant]
     Dosage: 5 MG, QD
  7. COVERSYL                                /BEL/ [Concomitant]
     Dosage: 5 MG (5MG/1.25MG), QD
  8. DIABEX [Concomitant]
     Dosage: 500 MG, (4 IN THE EVENING WITH MEALS)
  9. EFEXOR [Concomitant]
     Dosage: 75 MG, QD
  10. LIPEX [Concomitant]
     Dosage: 80 MG, QD
  11. LUCRIN [Concomitant]
     Dosage: 22.5 MG/2.0 ML,
  12. LYRICA [Concomitant]
     Dosage: 75 MG, QD
  13. OSTELIN [Concomitant]
     Dosage: 1000 IU, QD
  14. PANADOL [Concomitant]
     Dosage: 665 MG, PRN
  15. TARGIN [Concomitant]
     Dosage: 5 MG, BID

REACTIONS (15)
  - Femur fracture [Unknown]
  - Spinal column stenosis [Unknown]
  - Foramen magnum stenosis [Unknown]
  - Intervertebral disc degeneration [Unknown]
  - Post procedural complication [Not Recovered/Not Resolved]
  - Uveitis [Recovered/Resolved]
  - Eye pain [Recovered/Resolved]
  - Headache [Recovered/Resolved]
  - Eye pruritus [Unknown]
  - Eye irritation [Unknown]
  - Photophobia [Unknown]
  - Vision blurred [Unknown]
  - Ocular hyperaemia [Unknown]
  - Lacrimation increased [Unknown]
  - Malaise [Not Recovered/Not Resolved]
